FAERS Safety Report 20031277 (Version 1)
Quarter: 2021Q4

REPORT INFORMATION
  Report Type: Spontaneous
  Country: IN (occurrence: IN)
  Receive Date: 20211103
  Receipt Date: 20211103
  Transmission Date: 20220303
  Serious: Yes (Hospitalization)
  Sender: FDA-Public Use
  Company Number: IN-MYLANLABS-2021M1079811

PATIENT
  Age: 47 Year
  Sex: Male

DRUGS (6)
  1. AMPICILLIN [Suspect]
     Active Substance: AMPICILLIN
     Indication: Encephalitis brain stem
     Dosage: 200 MILLIGRAM/KILOGRAM, QD, IN FOUR DOSES
     Route: 065
  2. AMPICILLIN [Suspect]
     Active Substance: AMPICILLIN
     Indication: Listeriosis
  3. GENTAMICIN [Suspect]
     Active Substance: GENTAMICIN
     Indication: Encephalitis brain stem
     Dosage: 5 MILLIGRAM/KILOGRAM, QD
     Route: 065
  4. GENTAMICIN [Suspect]
     Active Substance: GENTAMICIN
     Indication: Listeriosis
  5. CEFTRIAXONE [Concomitant]
     Active Substance: CEFTRIAXONE
     Indication: Drug therapy
     Dosage: 2 GRAM, BID
     Route: 065
  6. VANCOMYCIN [Concomitant]
     Active Substance: VANCOMYCIN
     Indication: Drug therapy
     Dosage: 1 GRAM, BID
     Route: 065

REACTIONS (1)
  - Drug ineffective [Unknown]
